FAERS Safety Report 7110553-0 (Version None)
Quarter: 2010Q4

REPORT INFORMATION
  Report Type: 
  Country: None (occurrence: None)
  Receive Date: 20101118
  Receipt Date: 20101111
  Transmission Date: 20110411
  Serious: Yes (Death, Life-Threatening, Other)
  Sender: FDA-Public Use
  Company Number: JP-ROCHE-712668

PATIENT
  Sex: Female
  Weight: 66.7 kg

DRUGS (32)
  1. TOCILIZUMAB [Suspect]
     Indication: CASTLEMAN'S DISEASE
     Route: 041
     Dates: start: 20100406, end: 20100406
  2. TOCILIZUMAB [Suspect]
     Route: 041
     Dates: start: 20100420, end: 20100601
  3. PREDNISOLONE [Concomitant]
     Dosage: FORM: PER-ORAL AGENT.
     Route: 048
     Dates: end: 20100406
  4. PREDNISOLONE [Concomitant]
     Dosage: DOSE FORM: PERORAL AGENT
     Route: 048
     Dates: end: 20100420
  5. PREDNISOLONE [Concomitant]
     Route: 048
     Dates: start: 20100421, end: 20100520
  6. PREDNISOLONE [Concomitant]
     Route: 048
     Dates: start: 20100521, end: 20100527
  7. PREDNISOLONE [Concomitant]
     Route: 048
     Dates: start: 20100528, end: 20100608
  8. PREDNISOLONE [Concomitant]
     Route: 048
     Dates: start: 20100609, end: 20100610
  9. SOLU-MEDROL [Concomitant]
     Route: 041
     Dates: start: 20100610, end: 20100612
  10. SOLU-MEDROL [Concomitant]
     Route: 041
     Dates: start: 20100613, end: 20100615
  11. SOLU-MEDROL [Concomitant]
     Route: 041
     Dates: start: 20100621, end: 20100623
  12. SOLU-MEDROL [Concomitant]
     Route: 041
     Dates: start: 20100624, end: 20100624
  13. PREDNISOLONE [Concomitant]
     Route: 041
     Dates: start: 20100616, end: 20100620
  14. FERO-GRADUMET [Concomitant]
     Route: 048
     Dates: start: 20100312, end: 20100514
  15. PROMAC [Concomitant]
     Dosage: DOSE FORM: PERORAL AGENT
     Route: 048
  16. LIDOCAINE HYDROCHLORIDE IN PLASTIC CONTAINER [Concomitant]
     Dosage: DRUG NAME: OLIVES(LIDOCAINE), NOTE: DOSAGE IS UNCERTAIN.
     Route: 041
     Dates: start: 20100615, end: 20100620
  17. VFEND [Concomitant]
     Route: 041
     Dates: start: 20100621, end: 20100624
  18. ZOSYN [Concomitant]
     Route: 041
     Dates: start: 20100610, end: 20100616
  19. ZOSYN [Concomitant]
     Route: 041
     Dates: start: 20100619, end: 20100622
  20. VANCOMYCIN [Concomitant]
     Route: 041
     Dates: start: 20100622, end: 20100624
  21. ENDOXAN [Concomitant]
     Route: 041
     Dates: start: 20100618, end: 20100618
  22. URSO 250 [Concomitant]
     Dosage: DOSE FORM: PERORAL AGENT
     Route: 048
     Dates: end: 20100514
  23. ADALAT CC [Concomitant]
     Route: 048
     Dates: end: 20100222
  24. PARIET [Concomitant]
     Route: 048
     Dates: end: 20100610
  25. DORAL [Concomitant]
     Dosage: DOSE FORM: PERORAL AGENT
     Route: 048
     Dates: end: 20100610
  26. HIRNAMIN [Concomitant]
     Route: 048
     Dates: end: 20100610
  27. HALCION [Concomitant]
     Route: 048
  28. HALCION [Concomitant]
     Route: 048
     Dates: end: 20100610
  29. DIOVAN [Concomitant]
     Route: 048
     Dates: start: 20100223, end: 20100610
  30. NEORAL [Concomitant]
     Route: 048
     Dates: start: 20091210, end: 20091217
  31. NEORAL [Concomitant]
     Route: 048
     Dates: start: 20091218, end: 20091224
  32. BREDININ [Concomitant]
     Route: 048
     Dates: start: 20100108, end: 20100405

REACTIONS (20)
  - ABDOMINAL PAIN [None]
  - ACIDOSIS [None]
  - BLOOD PRESSURE DECREASED [None]
  - BRADYCARDIA [None]
  - BUNDLE BRANCH BLOCK LEFT [None]
  - CARDIAC ARREST [None]
  - CARDIAC FAILURE [None]
  - ELECTROCARDIOGRAM CHANGE [None]
  - ELECTROCARDIOGRAM ST SEGMENT DEPRESSION [None]
  - HEADACHE [None]
  - INTERSTITIAL LUNG DISEASE [None]
  - MENTAL DISORDER [None]
  - PERICARDIAL EFFUSION [None]
  - PNEUMOCYSTIS JIROVECI PNEUMONIA [None]
  - PNEUMONIA BACTERIAL [None]
  - PULMONARY OEDEMA [None]
  - RASH [None]
  - SEPSIS [None]
  - VENTRICULAR EXTRASYSTOLES [None]
  - VENTRICULAR TACHYCARDIA [None]
